FAERS Safety Report 6821311-6 (Version None)
Quarter: 2010Q3

REPORT INFORMATION
  Report Type: 
  Country: None (occurrence: None)
  Receive Date: 20100707
  Receipt Date: 20080522
  Transmission Date: 20110219
  Serious: No
  Sender: FDA-Public Use
  Company Number: US-PFIZER INC-2008041742

PATIENT
  Sex: Female
  Weight: 62.727 kg

DRUGS (2)
  1. SERTRALINE [Suspect]
     Dates: start: 20080301, end: 20080301
  2. AVAPRO [Concomitant]
     Indication: HYPERTENSION

REACTIONS (1)
  - DRUG INEFFECTIVE [None]
